FAERS Safety Report 15843483 (Version 6)
Quarter: 2019Q1

REPORT INFORMATION
  Report Type: Spontaneous
  Country: CA (occurrence: CA)
  Receive Date: 20190118
  Receipt Date: 20190305
  Transmission Date: 20190417
  Serious: Yes (Other)
  Sender: FDA-Public Use
  Company Number: CA-JNJFOC-20190121116

PATIENT
  Age: 68 Year
  Sex: Female

DRUGS (3)
  1. ADEMPAS [Suspect]
     Active Substance: RIOCIGUAT
     Indication: PULMONARY HYPERTENSION
     Route: 048
  2. XARELTO [Suspect]
     Active Substance: RIVAROXABAN
     Indication: PRODUCT USED FOR UNKNOWN INDICATION
     Route: 048
  3. ADEMPAS [Suspect]
     Active Substance: RIOCIGUAT
     Indication: PULMONARY HYPERTENSION
     Route: 048
     Dates: start: 20181029

REACTIONS (23)
  - Dizziness [Recovered/Resolved]
  - Dyspepsia [Not Recovered/Not Resolved]
  - Nasopharyngitis [Recovering/Resolving]
  - Dizziness postural [Recovering/Resolving]
  - Heart rate decreased [Unknown]
  - Malaise [Recovering/Resolving]
  - Peripheral swelling [Recovering/Resolving]
  - Gait disturbance [Unknown]
  - Fluid retention [Recovered/Resolved]
  - Weight decreased [Unknown]
  - Dyspnoea [Not Recovered/Not Resolved]
  - Dyspnoea exertional [Not Recovered/Not Resolved]
  - Dyspepsia [Unknown]
  - Blood pressure systolic decreased [Not Recovered/Not Resolved]
  - Ear infection [Recovering/Resolving]
  - Nasal congestion [Recovering/Resolving]
  - Pharyngeal oedema [Not Recovered/Not Resolved]
  - Blood pressure systolic decreased [Recovered/Resolved]
  - Fluid retention [Unknown]
  - Sinus congestion [Not Recovered/Not Resolved]
  - Cough [Unknown]
  - Nasal congestion [Not Recovered/Not Resolved]
  - Balance disorder [Not Recovered/Not Resolved]

NARRATIVE: CASE EVENT DATE: 2018
